FAERS Safety Report 9911562 (Version 2)
Quarter: 2014Q1

REPORT INFORMATION
  Report Type: Spontaneous
  Country: IL (occurrence: IL)
  Receive Date: 20140219
  Receipt Date: 20140219
  Transmission Date: 20141002
  Serious: Yes (Death, Hospitalization, Other)
  Sender: FDA-Public Use
  Company Number: PHHY2014IL002491

PATIENT
  Age: 65 Year
  Sex: Male

DRUGS (5)
  1. CERTICAN [Suspect]
     Indication: HEART TRANSPLANT
     Dosage: 1 MG, BID
     Route: 048
     Dates: start: 20130213
  2. PREDNISON [Suspect]
     Dosage: 5MGX2 DF, UNK
  3. CELLCEPT [Suspect]
     Dosage: 1500 UKN, UNK
  4. RESPRIM [Concomitant]
     Dosage: UKN
  5. INSULIN [Concomitant]
     Dosage: UKN

REACTIONS (8)
  - West Nile viral infection [Fatal]
  - CSF protein increased [Fatal]
  - Pleocytosis [Fatal]
  - Pain in extremity [Fatal]
  - Pyrexia [Fatal]
  - Intestinal obstruction [Unknown]
  - Infection [Unknown]
  - Immunosuppressant drug level increased [Unknown]
